FAERS Safety Report 8778931 (Version 1)
Quarter: 2012Q4

REPORT INFORMATION
  Report Type: 
  Country: FR (occurrence: FR)
  Receive Date: 20120910
  Receipt Date: 20120910
  Transmission Date: 20130627
  Serious: Yes (Hospitalization)
  Sender: FDA-Public Use
  Company Number: FR-ELI_LILLY_AND_COMPANY-FR201209001292

PATIENT
  Age: 80 Year
  Sex: Female

DRUGS (2)
  1. CYMBALTA [Suspect]
     Indication: DEPRESSION
     Dosage: 30 mg, qd
     Route: 048
     Dates: start: 201208, end: 201208
  2. CYMBALTA [Suspect]
     Dosage: 60 mg, qd
     Route: 048
     Dates: start: 201208, end: 201208

REACTIONS (6)
  - ECG signs of myocardial ischaemia [Unknown]
  - Electrocardiogram T wave inversion [Unknown]
  - Periorbital haematoma [Recovered/Resolved]
  - Fall [Recovered/Resolved]
  - Tachycardia [Unknown]
  - Dizziness [Recovered/Resolved]
